FAERS Safety Report 23810209 (Version 2)
Quarter: 2024Q2

REPORT INFORMATION
  Report Type: Spontaneous
  Country: US (occurrence: US)
  Receive Date: 20240502
  Receipt Date: 20240514
  Transmission Date: 20240716
  Serious: No
  Sender: FDA-Public Use
  Company Number: US-BRISTOL-MYERS SQUIBB COMPANY-2024-056103

PATIENT
  Age: 56 Year
  Sex: Female

DRUGS (3)
  1. ORENCIA [Suspect]
     Active Substance: ABATACEPT
     Indication: Rheumatoid arthritis
     Route: 058
     Dates: start: 202303
  2. ORENCIA [Suspect]
     Active Substance: ABATACEPT
     Indication: Sjogren^s syndrome
     Route: 058
     Dates: start: 202303
  3. ORENCIA [Suspect]
     Active Substance: ABATACEPT
     Route: 058
     Dates: start: 202403

REACTIONS (5)
  - Device defective [Unknown]
  - Product distribution issue [Unknown]
  - Swelling [Unknown]
  - Pain [Unknown]
  - Brain fog [Unknown]
